FAERS Safety Report 8174296-7 (Version None)
Quarter: 2012Q1

REPORT INFORMATION
  Report Type: 
  Country: None (occurrence: None)
  Receive Date: 20120229
  Receipt Date: 20120217
  Transmission Date: 20120608
  Serious: Yes (Hospitalization, Other)
  Sender: FDA-Public Use
  Company Number: JP-BRISTOL-MYERS SQUIBB COMPANY-16365843

PATIENT
  Age: 19 Year
  Sex: Male
  Weight: 70 kg

DRUGS (9)
  1. NEMONAPRIDE [Concomitant]
     Indication: DYSPHAGIA
     Dosage: 14JUL10 DOSE REDUCED TO 20MG
  2. DEPAKENE [Concomitant]
     Dates: start: 20100714
  3. NEMONAPRIDE [Concomitant]
     Indication: SALIVARY HYPERSECRETION
     Dosage: 14JUL10 DOSE REDUCED TO 20MG
  4. LEVOTOMIN [Concomitant]
     Dosage: TAB14JUL10-13AUG10,GRANULES13AUG-ONG
     Dates: start: 20100714
  5. EMILACE [Concomitant]
     Dosage: TAB
     Dates: end: 20100728
  6. NEMONAPRIDE [Concomitant]
     Indication: BRADYKINESIA
     Dosage: 14JUL10 DOSE REDUCED TO 20MG
  7. ABILIFY [Suspect]
     Indication: SCHIZOPHRENIA
     Dosage: STRE:6MG,24MG21JUL-27JUL-7D,30MG28JUL-15AUG10=19D,24MG16AUG-22AUG=7D,18MG14-20JUL,23AUG-28AUG10=6D
     Route: 048
     Dates: start: 20100714, end: 20100829
  8. NEMONAPRIDE [Concomitant]
     Indication: SEXUAL DYSFUNCTION
     Dosage: 14JUL10 DOSE REDUCED TO 20MG
  9. ZYPREXA [Concomitant]
     Dates: start: 20100714, end: 20100813

REACTIONS (3)
  - ABNORMAL BEHAVIOUR [None]
  - RESTLESSNESS [None]
  - DISTURBANCE IN SOCIAL BEHAVIOUR [None]
